FAERS Safety Report 14425105 (Version 1)
Quarter: 2018Q1

REPORT INFORMATION
  Report Type: Spontaneous
  Country: CO (occurrence: CO)
  Receive Date: 20180123
  Receipt Date: 20180123
  Transmission Date: 20180509
  Serious: Yes (Hospitalization)
  Sender: FDA-Public Use
  Company Number: CO-ORPHAN EUROPE-2040617

PATIENT
  Age: 5 Year
  Sex: Male
  Weight: 16 kg

DRUGS (7)
  1. L-CARNITINA [Concomitant]
     Active Substance: LEVOCARNITINE
     Route: 048
  2. FENOBARBITAL [Concomitant]
     Active Substance: PHENOBARBITAL
     Route: 048
  3. L-ARGININE [Concomitant]
     Active Substance: ARGININE
     Route: 048
  4. ACIDO FOLICO [Concomitant]
     Active Substance: CYANOCOBALAMIN\FOLIC ACID\PYRIDOXINE HYDROCHLORIDE
     Route: 048
  5. LEVETIRACETAM. [Concomitant]
     Active Substance: LEVETIRACETAM
  6. PIRIDOXINA [Concomitant]
     Route: 048
  7. CARBAGLU [Suspect]
     Active Substance: CARGLUMIC ACID
     Indication: PRODUCT USED FOR UNKNOWN INDICATION

REACTIONS (3)
  - Vomiting [Recovered/Resolved]
  - Influenza [Recovered/Resolved]
  - Seizure [Recovered/Resolved]

NARRATIVE: CASE EVENT DATE: 20171031
